FAERS Safety Report 9004457 (Version 1)
Quarter: 2013Q1

REPORT INFORMATION
  Report Type: Spontaneous
  Country: US (occurrence: None)
  Receive Date: 20130103
  Receipt Date: 20130103
  Transmission Date: 20140127
  Serious: Yes (Hospitalization)
  Sender: FDA-Public Use
  Company Number: None

PATIENT
  Age: 44 Year
  Sex: Female

DRUGS (1)
  1. METOPROLOL [Suspect]
     Indication: HYPERTENSION
     Route: 048
     Dates: start: 20121015, end: 20121016

REACTIONS (10)
  - Dizziness [None]
  - Paraesthesia [None]
  - Paraesthesia [None]
  - Heart rate decreased [None]
  - Coordination abnormal [None]
  - Asthenia [None]
  - Atrial fibrillation [None]
  - Gait disturbance [None]
  - Chest pain [None]
  - Product quality issue [None]
